FAERS Safety Report 10097108 (Version 1)
Quarter: 2014Q2

REPORT INFORMATION
  Report Type: Spontaneous
  Country: US (occurrence: CA)
  Receive Date: 20140422
  Receipt Date: 20140422
  Transmission Date: 20141212
  Serious: Yes (Other)
  Sender: FDA-Public Use
  Company Number: CA-TEVA-477215USA

PATIENT
  Age: 40 Year
  Sex: Male

DRUGS (4)
  1. OLANZAPINE [Suspect]
     Indication: SCHIZOPHRENIA
     Dosage: 10 MILLIGRAM DAILY;
     Route: 048
     Dates: start: 20131020
  2. OLANZAPINE [Suspect]
     Dosage: 20 MILLIGRAM DAILY;
     Route: 048
     Dates: start: 201403
  3. OLANZAPINE [Suspect]
     Route: 048
  4. OLANZAPINE [Suspect]
     Route: 048

REACTIONS (5)
  - Serotonin syndrome [Not Recovered/Not Resolved]
  - Cardiomyopathy [Not Recovered/Not Resolved]
  - Hypotension [Not Recovered/Not Resolved]
  - Palpitations [Not Recovered/Not Resolved]
  - Dyspnoea [Not Recovered/Not Resolved]
